FAERS Safety Report 9091142 (Version 1)
Quarter: 2013Q1

REPORT INFORMATION
  Report Type: Spontaneous
  Country: JP (occurrence: JP)
  Receive Date: 20130201
  Receipt Date: 20130201
  Transmission Date: 20140127
  Serious: Yes (Other)
  Sender: FDA-Public Use
  Company Number: JP-B.I. PHARMACEUTICALS,INC./RIDGEFIELD-2013-BI-02189NB

PATIENT
  Sex: Female

DRUGS (1)
  1. MICAMLO COMBINATION [Suspect]
     Dosage: TELMISARTAN 40MG/AMLODIPINE 5MG, 1DF
     Route: 048

REACTIONS (1)
  - Stevens-Johnson syndrome [Recovered/Resolved]
